FAERS Safety Report 7744421-8 (Version None)
Quarter: 2011Q3

REPORT INFORMATION
  Report Type: 
  Country: None (occurrence: None)
  Receive Date: 20110912
  Receipt Date: 20110829
  Transmission Date: 20111222
  Serious: Yes (Hospitalization)
  Sender: FDA-Public Use
  Company Number: US-ELI_LILLY_AND_COMPANY-US201106007720

PATIENT
  Age: 63 Year
  Sex: Female

DRUGS (10)
  1. FENTANYL-100 [Concomitant]
  2. TOPIRAMATE [Concomitant]
  3. FORTEO [Suspect]
     Indication: OSTEOPOROSIS
     Dosage: 20 UG, QD
     Route: 065
  4. OXYCONTIN [Concomitant]
  5. ALPRAZOLAM [Concomitant]
  6. OXYCODONE AND ACETAMINOPHEN [Concomitant]
  7. TOLTERODINE TARTRATE [Concomitant]
  8. TRAZODONE HCL [Concomitant]
  9. ADVAIR DISKUS 100/50 [Concomitant]
  10. BACLOFEN [Concomitant]

REACTIONS (3)
  - DRUG INTERACTION [None]
  - MALAISE [None]
  - ELECTROLYTE IMBALANCE [None]
